FAERS Safety Report 9931091 (Version 2)
Quarter: 2014Q1

REPORT INFORMATION
  Report Type: Spontaneous
  Country: US (occurrence: US)
  Receive Date: 20140227
  Receipt Date: 20140317
  Transmission Date: 20141002
  Serious: No
  Sender: FDA-Public Use
  Company Number: US-009507513-1402USA010323

PATIENT
  Age: 79 Year
  Sex: Male

DRUGS (7)
  1. LIPTRUZET [Suspect]
     Indication: BLOOD CHOLESTEROL INCREASED
     Dosage: 10/20MG/ONCE A DAY
     Route: 048
     Dates: start: 20140130, end: 20140218
  2. LIPTRUZET [Suspect]
     Indication: BLOOD TRIGLYCERIDES ABNORMAL
  3. ZESTORETIC [Concomitant]
     Route: 048
  4. ZESTRIL [Concomitant]
     Route: 048
  5. NORVASC [Concomitant]
  6. CENTRUM SILVER [Concomitant]
  7. ASPIRIN [Concomitant]

REACTIONS (4)
  - Haemorrhage urinary tract [Not Recovered/Not Resolved]
  - Back pain [Not Recovered/Not Resolved]
  - Arthralgia [Not Recovered/Not Resolved]
  - Myalgia [Not Recovered/Not Resolved]
